FAERS Safety Report 7460771-7 (Version None)
Quarter: 2011Q2

REPORT INFORMATION
  Report Type: 
  Country: None (occurrence: None)
  Receive Date: 20110505
  Receipt Date: 20110427
  Transmission Date: 20111010
  Serious: Yes (Other)
  Sender: FDA-Public Use
  Company Number: PHEH2007US02757

PATIENT
  Sex: Female
  Weight: 54.421 kg

DRUGS (13)
  1. ALLEGRA [Concomitant]
  2. LACTINEX [Concomitant]
     Dosage: UNK
  3. ARIMIDEX [Concomitant]
     Dosage: UNK
  4. PREMARIN [Suspect]
     Indication: HORMONE REPLACEMENT THERAPY
     Dosage: 0.625 MG, UNK
     Route: 048
     Dates: start: 19960701
  5. CEFTIN [Concomitant]
     Dosage: UNK
  6. PROVERA [Suspect]
     Indication: HORMONE REPLACEMENT THERAPY
     Dosage: 10 MG, UNK
     Route: 048
     Dates: start: 19960701
  7. PREMPRO [Suspect]
     Indication: HORMONE REPLACEMENT THERAPY
     Dosage: UNK, UNK
     Dates: start: 19971001
  8. ESTRADERM [Suspect]
     Indication: HORMONE REPLACEMENT THERAPY
     Route: 062
     Dates: start: 19950601
  9. PREMPRO [Suspect]
     Dosage: UNK, UNK
     Dates: start: 20010601
  10. TOPRAL [Concomitant]
     Dosage: 25 MG
  11. ZYBAN [Concomitant]
     Dosage: 150MG, QD
     Route: 048
  12. ZOLOFT [Concomitant]
     Indication: DEPRESSION
     Dosage: 25 MG, QD
     Route: 048
  13. BONIVA [Concomitant]
     Dosage: UNK

REACTIONS (47)
  - DYSPNOEA [None]
  - PYREXIA [None]
  - ELECTROCARDIOGRAM CHANGE [None]
  - MITRAL VALVE INCOMPETENCE [None]
  - SEBORRHOEIC KERATOSIS [None]
  - BRONCHITIS [None]
  - BREAST CALCIFICATIONS [None]
  - SCAR [None]
  - ASTHENIA [None]
  - THROMBOSIS [None]
  - VAGINAL HAEMORRHAGE [None]
  - OROPHARYNGEAL PAIN [None]
  - PRODUCTIVE COUGH [None]
  - NASOPHARYNGITIS [None]
  - HOT FLUSH [None]
  - BREAST CANCER RECURRENT [None]
  - RHINITIS [None]
  - BREAST MASS [None]
  - DIARRHOEA [None]
  - OEDEMA PERIPHERAL [None]
  - INTERVERTEBRAL DISC DEGENERATION [None]
  - ADENOMA BENIGN [None]
  - SINUSITIS [None]
  - OTITIS EXTERNA [None]
  - BIOPSY [None]
  - ARTHRALGIA [None]
  - KELOID SCAR [None]
  - BACK PAIN [None]
  - HAEMORRHOIDS [None]
  - FAT NECROSIS [None]
  - ANGIOPATHY [None]
  - EXERCISE TOLERANCE DECREASED [None]
  - EXERCISE TEST ABNORMAL [None]
  - FIBROCYSTIC BREAST DISEASE [None]
  - DEEP VEIN THROMBOSIS [None]
  - CHILLS [None]
  - HEPATIC ENZYME ABNORMAL [None]
  - HEADACHE [None]
  - CARDIAC DISORDER [None]
  - DIVERTICULUM [None]
  - POLYP COLORECTAL [None]
  - OSTEOPENIA [None]
  - OSTEOPOROSIS [None]
  - ARRHYTHMIA [None]
  - BREAST CANCER METASTATIC [None]
  - FATIGUE [None]
  - NIGHT SWEATS [None]
